FAERS Safety Report 26037140 (Version 1)
Quarter: 2025Q4

REPORT INFORMATION
  Report Type: Spontaneous
  Country: US (occurrence: US)
  Receive Date: 20251112
  Receipt Date: 20251112
  Transmission Date: 20260118
  Serious: Yes (Hospitalization, Other)
  Sender: NOVO NORDISK
  Company Number: US-NOVOPROD-1556306

PATIENT
  Sex: Female

DRUGS (1)
  1. OZEMPIC [Suspect]
     Active Substance: SEMAGLUTIDE
     Indication: Type 2 diabetes mellitus
     Dosage: 2 MG, QW
     Dates: start: 2023

REACTIONS (6)
  - Fall [Unknown]
  - Rib fracture [Unknown]
  - Spinal fracture [Unknown]
  - Macular degeneration [Unknown]
  - Haemorrhage [Unknown]
  - Anaemia [Unknown]
